FAERS Safety Report 6149838-3 (Version None)
Quarter: 2009Q2

REPORT INFORMATION
  Report Type: 
  Country: None (occurrence: None)
  Receive Date: 20090409
  Receipt Date: 20090402
  Transmission Date: 20091009
  Serious: Yes (Other)
  Sender: FDA-Public Use
  Company Number: US-NOVOPROD-285947

PATIENT
  Sex: Female
  Weight: 72.562 kg

DRUGS (9)
  1. ACTIVELLA [Suspect]
     Indication: HORMONE REPLACEMENT THERAPY
     Dosage: UNK, UNK
     Route: 048
     Dates: start: 20010901, end: 20011201
  2. PREMARIN [Suspect]
     Indication: MENOPAUSE
     Dosage: .625 MG, QD
     Dates: start: 19900101, end: 20010901
  3. PROVERA [Suspect]
     Indication: MENOPAUSE
     Dates: start: 19900101, end: 19991201
  4. MEDROXYPROGESTERONE [Suspect]
     Indication: MENOPAUSE
     Dates: start: 19990301, end: 20010901
  5. BISOPROLOL FUMARATE [Concomitant]
     Indication: CARDIAC DISORDER
     Dates: start: 20020101
  6. XANAX [Concomitant]
     Indication: STRESS
     Dates: start: 19970101, end: 20020101
  7. AVANDAMET [Concomitant]
     Indication: DIABETES MELLITUS
  8. BENICAR [Concomitant]
     Indication: HYPERTENSION
  9. ASPIRIN [Concomitant]
     Indication: CARDIAC DISORDER

REACTIONS (2)
  - ATRIOVENTRICULAR BLOCK [None]
  - BREAST CANCER [None]
